FAERS Safety Report 5936756-6 (Version None)
Quarter: 2008Q4

REPORT INFORMATION
  Report Type: 
  Country: None (occurrence: None)
  Receive Date: 20081021
  Receipt Date: 20081008
  Transmission Date: 20090506
  Serious: Yes (Hospitalization)
  Sender: FDA-Public Use
  Company Number: THYM-1000821

PATIENT
  Weight: 2.7 kg

DRUGS (5)
  1. THYMOGLOBULIN [Suspect]
     Indication: KIDNEY TRANSPLANT REJECTION
     Dosage: TRANSPLACENTAL
     Route: 064
  2. INSULIN (INSULIN HUMAN) [Concomitant]
  3. ANTIBIOTICS [Concomitant]
  4. TACROLIMUS [Suspect]
  5. AZATHIOPRINE [Concomitant]

REACTIONS (4)
  - CAESAREAN SECTION [None]
  - FOETAL DISTRESS SYNDROME [None]
  - MATERNAL DRUGS AFFECTING FOETUS [None]
  - PREMATURE BABY [None]
